FAERS Safety Report 8541526-9 (Version None)
Quarter: 2012Q3

REPORT INFORMATION
  Report Type: 
  Country: None (occurrence: None)
  Receive Date: 20120726
  Receipt Date: 20120712
  Transmission Date: 20120928
  Serious: No
  Sender: FDA-Public Use
  Company Number: US-ENDO PHARMACEUTICALS INC.-OPER20120711

PATIENT
  Sex: Female

DRUGS (2)
  1. OPANA ER [Suspect]
     Route: 048
  2. OPANA ER [Suspect]
     Indication: PAIN
     Route: 048
     Dates: end: 20120101

REACTIONS (2)
  - DRUG INEFFECTIVE [None]
  - DRUG SCREEN NEGATIVE [None]
